FAERS Safety Report 6049426-3 (Version None)
Quarter: 2009Q1

REPORT INFORMATION
  Report Type: 
  Country: None (occurrence: None)
  Receive Date: 20090121
  Receipt Date: 20080215
  Transmission Date: 20090719
  Serious: Yes (Hospitalization)
  Sender: FDA-Public Use
  Company Number: HQWYE835618OCT04

PATIENT
  Age: 54 Year
  Sex: Female
  Weight: 99.88 kg

DRUGS (1)
  1. PREMPHASE 14/14 [Suspect]

REACTIONS (2)
  - DEEP VEIN THROMBOSIS [None]
  - WEIGHT INCREASED [None]
